FAERS Safety Report 23677493 (Version 1)
Quarter: 2024Q1

REPORT INFORMATION
  Report Type: Spontaneous
  Country: US (occurrence: None)
  Receive Date: 20240326
  Receipt Date: 20240326
  Transmission Date: 20240410
  Serious: Yes (Other)
  Sender: FDA-Public Use
  Company Number: None

PATIENT
  Age: 52 Year
  Sex: Female
  Weight: 112.5 kg

DRUGS (1)
  1. HYDROCORTISONE [Suspect]
     Active Substance: HYDROCORTISONE
     Dates: start: 20240323

REACTIONS (5)
  - Urticaria [None]
  - Blister [None]
  - Neuralgia [None]
  - Systemic inflammatory response syndrome [None]
  - Muscle twitching [None]

NARRATIVE: CASE EVENT DATE: 20240325
